FAERS Safety Report 18593390 (Version 1)
Quarter: 2020Q4

REPORT INFORMATION
  Report Type: Other
  Country: CA (occurrence: CA)
  Receive Date: 20201209
  Receipt Date: 20201209
  Transmission Date: 20210114
  Serious: Yes (Death)
  Sender: FDA-Public Use
  Company Number: CA-CELLTRION INC.-2020CA033329

PATIENT

DRUGS (3)
  1. CYCLOPHOSPHAMIDE. [Suspect]
     Active Substance: CYCLOPHOSPHAMIDE
     Indication: APLASTIC ANAEMIA
     Dosage: 300.0 DOSAGE FORM
  2. ETOPOSIDE. [Suspect]
     Active Substance: ETOPOSIDE
     Indication: APLASTIC ANAEMIA
     Dosage: 50.0 DOSAGE FORM
     Route: 065
  3. RITUXIMAB (UNKNOWN) [Suspect]
     Active Substance: RITUXIMAB
     Indication: APLASTIC ANAEMIA
     Dosage: UNK
     Route: 065

REACTIONS (4)
  - Multiple organ dysfunction syndrome [Fatal]
  - Product use in unapproved indication [Fatal]
  - Malignant neoplasm progression [Fatal]
  - Off label use [Unknown]
